FAERS Safety Report 6083415-8 (Version None)
Quarter: 2009Q1

REPORT INFORMATION
  Report Type: 
  Country: None (occurrence: None)
  Receive Date: 20090217
  Receipt Date: 20090130
  Transmission Date: 20090719
  Serious: Yes (Death)
  Sender: FDA-Public Use
  Company Number: 000363

PATIENT
  Age: 33 Year
  Sex: Female

DRUGS (9)
  1. ALPRAZOLAM [Suspect]
  2. ACETAMINOPHEN [Suspect]
  3. MORPHINE [Suspect]
  4. TYLENOL /00020001/ (NOT SPECIFIED) [Suspect]
  5. FENTANYL [Suspect]
  6. DIPHENHYDRAMINE HCL [Suspect]
  7. DIAZEPAM [Suspect]
  8. PROMETHAZINE [Suspect]
  9. CARISOPRODOL [Suspect]

REACTIONS (6)
  - ACCIDENTAL DEATH [None]
  - INTENTIONAL DRUG MISUSE [None]
  - MULTIPLE DRUG OVERDOSE [None]
  - THERAPEUTIC AGENT TOXICITY [None]
  - UNRESPONSIVE TO STIMULI [None]
  - WRONG TECHNIQUE IN DRUG USAGE PROCESS [None]
